FAERS Safety Report 7810213-4 (Version None)
Quarter: 2011Q4

REPORT INFORMATION
  Report Type: 
  Country: None (occurrence: None)
  Receive Date: 20111012
  Receipt Date: 20110927
  Transmission Date: 20120403
  Serious: Yes (Other)
  Sender: FDA-Public Use
  Company Number: IT-ROCHE-1000412

PATIENT
  Sex: Female

DRUGS (2)
  1. AVASTIN [Suspect]
     Indication: BREAST CANCER
     Route: 042
     Dates: start: 20100329, end: 20110706
  2. TAXOL [Suspect]
     Indication: BREAST CANCER
     Route: 042
     Dates: start: 20100329, end: 20110227

REACTIONS (8)
  - ABDOMINAL PAIN [None]
  - PARAESTHESIA [None]
  - PERIODONTAL DISEASE [None]
  - DIARRHOEA [None]
  - EPISTAXIS [None]
  - HYPERTENSION [None]
  - ASTHENIA [None]
  - MUSCULOSKELETAL PAIN [None]
